FAERS Safety Report 20835738 (Version 1)
Quarter: 2022Q2

REPORT INFORMATION
  Report Type: 
  Country: None (occurrence: None)
  Receive Date: 20220516
  Receipt Date: 20220516
  Transmission Date: 20220721
  Serious: No
  Sender: FDA-Public Use
  Company Number: MX-ROCHE-3089342

PATIENT

DRUGS (1)
  1. AVASTIN [Suspect]
     Active Substance: BEVACIZUMAB
     Dosage: FIRST DOSE: 8 MG
     Dates: start: 202203, end: 20220426

REACTIONS (10)
  - Suspected counterfeit product [None]
  - Off label use [None]
  - Off label use [None]
  - Suspected transmission of an infectious agent via product [None]
  - Bacterial endophthalmitis [None]
  - Pain [None]
  - Nausea [None]
  - Vomiting [None]
  - Open globe injury [None]
  - Blindness [None]

NARRATIVE: CASE EVENT DATE: 20220301
